FAERS Safety Report 4493353-X (Version None)
Quarter: 2004Q4

REPORT INFORMATION
  Report Type: 
  Country: None (occurrence: None)
  Receive Date: 20041102
  Receipt Date: 20040910
  Transmission Date: 20050328
  Serious: Yes (Other)
  Sender: FDA-Public Use
  Company Number: 1556

PATIENT
  Age: 22 Year
  Sex: Male

DRUGS (1)
  1. ADRIAMYCIN (DOXORUBICIN) INJ. USP 10/MG/5ML - BEN VENUE LABS, INC. [Suspect]
     Indication: SARCOMA
     Dosage: 180MG IV X1
     Dates: start: 20040909

REACTIONS (1)
  - MEDICATION ERROR [None]
